FAERS Safety Report 5356656-2 (Version None)
Quarter: 2007Q2

REPORT INFORMATION
  Report Type: 
  Country: None (occurrence: None)
  Receive Date: 20070530
  Receipt Date: 20061108
  Transmission Date: 20071010
  Serious: Yes (Other)
  Sender: FDA-Public Use
  Company Number: US200608005591

PATIENT
  Age: 57 Year
  Sex: Male
  Weight: 105.2 kg

DRUGS (5)
  1. ZYPREXA [Suspect]
     Dosage: 15 MG, 7.5 MG
     Dates: start: 20000801, end: 20030601
  2. ARIPIPRAZOLE [Concomitant]
  3. RISPERIDONE [Concomitant]
  4. HALOPERIDOL [Concomitant]
  5. DEPAKOTE [Concomitant]

REACTIONS (9)
  - BLOOD CHOLESTEROL ABNORMAL [None]
  - BLOOD TRIGLYCERIDES INCREASED [None]
  - DIABETES MELLITUS [None]
  - DIABETIC KETOACIDOSIS [None]
  - HYPERTENSION [None]
  - METABOLIC ACIDOSIS [None]
  - METABOLIC DISORDER [None]
  - OBESITY [None]
  - PANCREATITIS [None]
